FAERS Safety Report 9100287 (Version 1)
Quarter: 2013Q1

REPORT INFORMATION
  Report Type: Spontaneous
  Country: US (occurrence: US)
  Receive Date: 20130215
  Receipt Date: 20130215
  Transmission Date: 20140127
  Serious: No
  Sender: FDA-Public Use
  Company Number: US-PFIZER INC-2013059355

PATIENT
  Age: 46 Year
  Sex: Female

DRUGS (3)
  1. ALSUMA [Suspect]
     Indication: MIGRAINE
     Dosage: 6 MG, UNK
     Dates: start: 201301
  2. SUMATRIPTAN SUCCINATE [Suspect]
     Indication: MIGRAINE
  3. AMITRIPTYLINE [Concomitant]
     Dosage: UNK

REACTIONS (1)
  - Palpitations [Recovered/Resolved]
